FAERS Safety Report 9327010 (Version 2)
Quarter: 2013Q3

REPORT INFORMATION
  Report Type: Spontaneous
  Country: US (occurrence: US)
  Receive Date: 20130604
  Receipt Date: 20130708
  Transmission Date: 20140515
  Serious: Yes (Hospitalization, Other)
  Sender: FDA-Public Use
  Company Number: US-AMGEN-USASP2013033168

PATIENT
  Age: 63 Year
  Sex: Female

DRUGS (17)
  1. ENBREL [Suspect]
     Indication: PRODUCT USED FOR UNKNOWN INDICATION
     Dosage: 50 UNK, QWK
     Route: 065
     Dates: end: 201205
  2. ASPIRIN [Concomitant]
     Dosage: 81 MG, DAILY
     Route: 048
  3. COLCRYS [Concomitant]
     Dosage: 0.6 MG, TAKES AS DIRECTED
  4. FUROSEMIDE [Concomitant]
     Dosage: 20 MG, DAILY
     Route: 048
  5. METOPROLOL TARTRATE [Concomitant]
     Dosage: 50 MG, 1 BY MOUTH TWICE DAILY
     Route: 048
  6. OMEPRAZOLE [Concomitant]
     Dosage: 40 MG, AS NEEDED
  7. OXYCODONE [Concomitant]
     Dosage: 5 MG, AS NEEDED
  8. PREDNISONE [Concomitant]
     Dosage: 5 MG, 3 TABLETS BY MOUTH DAILY
     Route: 048
     Dates: start: 20120621
  9. PREDNISONE [Concomitant]
     Dosage: 1 MG, 4 TABS AS DIRECTED WEEKLY
     Route: 048
     Dates: start: 20120731
  10. PREDNISONE [Concomitant]
     Dosage: 5 MG, 2 TABS ONCE A DAY
     Route: 048
     Dates: start: 20120731
  11. PREDNISONE [Concomitant]
     Dosage: 5 MG, 4 TABLETS 3 PO DAILY
     Route: 048
     Dates: start: 20121126
  12. SIMVASTATIN [Concomitant]
     Dosage: 20 MG, 1 BY MOUTH DAILY
     Route: 048
  13. VICODIN [Concomitant]
     Indication: PAIN
     Dosage: 5-500 MG, 1 TAB EVERY 4 HOURS AS NEEDED
     Route: 048
     Dates: start: 20120827
  14. ARAVA [Concomitant]
     Dosage: 20 MG, 1 TABS ONCE A DAY
     Dates: start: 20120731
  15. ARAVA [Concomitant]
     Dosage: 20 MG, 1TABLET ONCE A DAY
     Dates: start: 20121126
  16. CYANOCOBALAMIN [Concomitant]
     Dosage: 1000 MCG/ML, EVERY THIRTY DAYS
     Route: 058
  17. PREDNISOLONE [Concomitant]
     Dosage: 15 MG, ONCE DAILY
     Route: 048

REACTIONS (61)
  - Diverticulitis [Unknown]
  - Renal failure [Unknown]
  - Dyspnoea [Unknown]
  - Muscle tightness [Unknown]
  - Depression [Recovering/Resolving]
  - Colitis ischaemic [Recovering/Resolving]
  - Dehydration [Unknown]
  - Cardiac failure congestive [Recovering/Resolving]
  - Renal failure acute [Not Recovered/Not Resolved]
  - Pyelonephritis [Unknown]
  - Urinary tract infection [Unknown]
  - Pneumonia [Unknown]
  - Atrial fibrillation [Unknown]
  - Rheumatoid arthritis [Not Recovered/Not Resolved]
  - Dyslipidaemia [Unknown]
  - Hypertensive heart disease [Unknown]
  - Anxiety [Recovering/Resolving]
  - Mitral valve disease [Unknown]
  - Gout [Unknown]
  - Hypertension [Not Recovered/Not Resolved]
  - Sleep apnoea syndrome [Not Recovered/Not Resolved]
  - Obesity [Not Recovered/Not Resolved]
  - Fatigue [Not Recovered/Not Resolved]
  - Hyperhidrosis [Unknown]
  - Chest discomfort [Unknown]
  - Weight fluctuation [Unknown]
  - Hair texture abnormal [Unknown]
  - Nail disorder [Unknown]
  - Wheezing [Unknown]
  - Abdominal pain [Unknown]
  - Diarrhoea [Unknown]
  - Renal failure chronic [Not Recovered/Not Resolved]
  - Pain in extremity [Not Recovered/Not Resolved]
  - Musculoskeletal pain [Not Recovered/Not Resolved]
  - Arthralgia [Not Recovered/Not Resolved]
  - Myofascial pain syndrome [Not Recovered/Not Resolved]
  - Fibromyalgia [Not Recovered/Not Resolved]
  - Walking aid user [Unknown]
  - Pain [Recovering/Resolving]
  - Oedema peripheral [Unknown]
  - Joint swelling [Unknown]
  - Joint effusion [Unknown]
  - Synovitis [Not Recovered/Not Resolved]
  - Hypoaesthesia [Unknown]
  - Balance disorder [Unknown]
  - Hypotension [Unknown]
  - Dizziness [Unknown]
  - Arthralgia [Unknown]
  - Hyperuricaemia [Unknown]
  - Neuropathy peripheral [Unknown]
  - Tarsal tunnel syndrome [Unknown]
  - Osteoarthritis [Not Recovered/Not Resolved]
  - Spinal osteoarthritis [Not Recovered/Not Resolved]
  - Gastrooesophageal reflux disease [Recovering/Resolving]
  - Irritable bowel syndrome [Recovering/Resolving]
  - Rhinitis allergic [Not Recovered/Not Resolved]
  - Mitral valve prolapse [Not Recovered/Not Resolved]
  - Gouty arthritis [Recovering/Resolving]
  - Bone disorder [Unknown]
  - Fluid overload [Unknown]
  - Helicobacter infection [Recovering/Resolving]
